FAERS Safety Report 11984397 (Version 1)
Quarter: 2016Q1

REPORT INFORMATION
  Report Type: Spontaneous
  Country: US (occurrence: US)
  Receive Date: 20160201
  Receipt Date: 20160201
  Transmission Date: 20160526
  Serious: No
  Sender: FDA-Public Use
  Company Number: US-KADMON PHARMACEUTICALS, LLC-KAD201506-001948

PATIENT
  Age: 55 Year
  Sex: Male
  Weight: 81.19 kg

DRUGS (14)
  1. IBUPROFEN. [Concomitant]
     Active Substance: IBUPROFEN
  2. SIMETHICONE (DIMETHICONE) [Concomitant]
     Active Substance: DIMETHICONE
  3. VIEKIRA PAK [Suspect]
     Active Substance: DASABUVIR\OMBITASVIR\PARITAPREVIR\RITONAVIR
     Indication: HEPATITIS C
     Dosage: TABLET
     Route: 048
     Dates: start: 20150528
  4. TOPROL XL [Concomitant]
     Active Substance: METOPROLOL SUCCINATE
  5. DOCUSATE [Concomitant]
     Active Substance: DOCUSATE
  6. VITAMIN D3 [Concomitant]
     Active Substance: CHOLECALCIFEROL
  7. HYDROCODONE/ ACETAMINOPHEN (VICODIN) [Concomitant]
  8. ACIDOPHILUS [Concomitant]
     Active Substance: LACTOBACILLUS ACIDOPHILUS
  9. CHLORTHALIDONE. [Concomitant]
     Active Substance: CHLORTHALIDONE
  10. RIBAVIRIN. [Suspect]
     Active Substance: RIBAVIRIN
     Indication: HEPATITIS C
     Dosage: TABLET
     Route: 048
     Dates: start: 20150529
  11. LOSARTAN. [Concomitant]
     Active Substance: LOSARTAN
  12. PANTOPRAZOLE [Concomitant]
     Active Substance: PANTOPRAZOLE SODIUM
  13. AGGRENOX (ASASANTIN) [Concomitant]
  14. CLONAZEPAM. [Concomitant]
     Active Substance: CLONAZEPAM

REACTIONS (9)
  - Nausea [Unknown]
  - Diarrhoea [Unknown]
  - Weight decreased [Unknown]
  - Anorectal discomfort [Recovered/Resolved]
  - Flatulence [Recovered/Resolved]
  - Insomnia [Unknown]
  - Asthenia [Unknown]
  - Nausea [Unknown]
  - Fatigue [Unknown]

NARRATIVE: CASE EVENT DATE: 2015
